FAERS Safety Report 5174237-0 (Version None)
Quarter: 2006Q4

REPORT INFORMATION
  Report Type: 
  Country: None (occurrence: None)
  Receive Date: 20061214
  Receipt Date: 20061206
  Transmission Date: 20070319
  Serious: Yes (Other)
  Sender: FDA-Public Use
  Company Number: US-JNJFOC-20061202040

PATIENT
  Sex: Female
  Weight: 68.04 kg

DRUGS (5)
  1. FENTANYL TRANSDERMAL SYSTEM [Suspect]
     Indication: BACK PAIN
     Route: 062
  2. OXYCODONE HCL [Concomitant]
     Indication: BACK PAIN
     Route: 048
  3. PERCOCET [Concomitant]
     Indication: BACK PAIN
     Route: 048
  4. SOMA [Concomitant]
     Indication: MUSCLE SPASMS
     Route: 048
  5. ZOCOR [Concomitant]
     Indication: BLOOD CHOLESTEROL
     Route: 048

REACTIONS (2)
  - GASTROENTERITIS VIRAL [None]
  - INTERVERTEBRAL DISC PROTRUSION [None]
